FAERS Safety Report 7588394-X (Version None)
Quarter: 2011Q2

REPORT INFORMATION
  Report Type: 
  Country: None (occurrence: None)
  Receive Date: 20110603
  Receipt Date: 20110412
  Transmission Date: 20111010
  Serious: No
  Sender: FDA-Public Use
  Company Number: 2011SP016525

PATIENT
  Age: 26 Year
  Sex: Female

DRUGS (1)
  1. SAPHRIS [Suspect]
     Indication: PRODUCT USED FOR UNKNOWN INDICATION
     Dosage: BID, SL 20 MG;QPM; PO
     Route: 060

REACTIONS (10)
  - MOOD ALTERED [None]
  - GLOSSODYNIA [None]
  - FATIGUE [None]
  - ANXIETY [None]
  - INCORRECT ROUTE OF DRUG ADMINISTRATION [None]
  - DRUG INEFFECTIVE [None]
  - TONGUE EXFOLIATION [None]
  - INAPPROPRIATE SCHEDULE OF DRUG ADMINISTRATION [None]
  - THINKING ABNORMAL [None]
  - HYPERSOMNIA [None]
